FAERS Safety Report 14377626 (Version 4)
Quarter: 2019Q4

REPORT INFORMATION
  Report Type: Not Available
  Country: CA (occurrence: CA)
  Receive Date: 20180111
  Receipt Date: 20191107
  Transmission Date: 20200122
  Serious: Yes (Hospitalization, Other)
  Sender: FDA-Public Use
  Company Number: CA-CELGENEUS-CAN-20180101141

PATIENT
  Age: 55 Year
  Sex: Male

DRUGS (33)
  1. PAMIDRONATE DISODIUM. [Concomitant]
     Active Substance: PAMIDRONATE DISODIUM
     Indication: PRODUCT USED FOR UNKNOWN INDICATION
     Route: 065
     Dates: end: 20170419
  2. REVLIMID [Suspect]
     Active Substance: LENALIDOMIDE
     Indication: PLASMA CELL MYELOMA
     Dosage: 25 MILLIGRAM
     Route: 048
     Dates: start: 20160302, end: 20170424
  3. ACETAMINOPHEN/OXYCODONE [Concomitant]
     Active Substance: ACETAMINOPHEN\OXYCODONE HYDROCHLORIDE
     Indication: PAIN
     Route: 065
     Dates: start: 20170305
  4. HYDROMORPHONE [Concomitant]
     Active Substance: HYDROMORPHONE
     Indication: PAIN
     Route: 065
  5. LORAZEPAM. [Concomitant]
     Active Substance: LORAZEPAM
     Indication: ANXIETY
  6. OXYCODONE [Concomitant]
     Active Substance: OXYCODONE
     Indication: ABDOMINAL PAIN
     Route: 065
     Dates: start: 20170423
  7. TYLENOL [Concomitant]
     Active Substance: ACETAMINOPHEN
     Indication: DIARRHOEA
  8. REVLIMID [Suspect]
     Active Substance: LENALIDOMIDE
     Indication: OFF LABEL USE
  9. HYDROCODONE/OXYCONTIN TEREPHTHALATE [Concomitant]
     Indication: PAIN
     Route: 065
     Dates: start: 2015
  10. CIPROFLOXACIN. [Concomitant]
     Active Substance: CIPROFLOXACIN
     Indication: ABDOMINAL PAIN
     Route: 065
     Dates: start: 20170423
  11. LORAZEPAM. [Concomitant]
     Active Substance: LORAZEPAM
     Indication: INSOMNIA
     Route: 065
     Dates: start: 20170518
  12. OXALIPLATIN. [Concomitant]
     Active Substance: OXALIPLATIN
     Indication: CHEMOTHERAPY
     Route: 065
     Dates: start: 20170523, end: 20170525
  13. RABEPRAZOLE [Concomitant]
     Active Substance: RABEPRAZOLE
     Indication: PROPHYLAXIS OF NAUSEA AND VOMITING
     Route: 065
     Dates: start: 20170523
  14. MORPHINE [Concomitant]
     Active Substance: MORPHINE
     Indication: DIARRHOEA
     Dosage: 5 MILLIGRAM
     Route: 065
  15. MORPHINE [Concomitant]
     Active Substance: MORPHINE
     Indication: DIARRHOEA
  16. BUSULFAN. [Suspect]
     Active Substance: BUSULFAN
     Indication: STEM CELL TRANSPLANT
     Dosage: 235 MILLIGRAM
     Route: 041
     Dates: start: 20151120, end: 20151122
  17. ASPIRIN. [Concomitant]
     Active Substance: ASPIRIN
     Indication: PROPHYLAXIS
     Dosage: 81 MILLIGRAM
     Route: 065
     Dates: start: 20160225, end: 20170427
  18. BEVACIZUMAB. [Concomitant]
     Active Substance: BEVACIZUMAB
     Indication: CHEMOTHERAPY
     Route: 065
     Dates: start: 20170523, end: 20170525
  19. CYCLOBENZAPRINE. [Concomitant]
     Active Substance: CYCLOBENZAPRINE
     Indication: ABDOMINAL PAIN
     Route: 065
     Dates: start: 20170423
  20. DEXAMETHASONE. [Concomitant]
     Active Substance: DEXAMETHASONE
     Indication: NEOPLASM MALIGNANT
     Route: 065
     Dates: start: 20170523
  21. ONDANSETRON [Concomitant]
     Active Substance: ONDANSETRON
     Indication: PROPHYLAXIS OF NAUSEA AND VOMITING
     Route: 065
     Dates: start: 20170523
  22. PROBIOTIC [Concomitant]
     Active Substance: PROBIOTICS NOS
     Indication: DIARRHOEA
  23. FLUOROURACIL. [Concomitant]
     Active Substance: FLUOROURACIL
     Indication: CHEMOTHERAPY
     Route: 065
     Dates: start: 20170523, end: 20170525
  24. GRAVEL [Concomitant]
     Indication: DIARRHOEA
     Dosage: 50 MILLIGRAM
     Route: 065
  25. STEMETIL [Concomitant]
     Active Substance: PROCHLORPERAZINE
     Indication: ANXIETY
     Route: 065
     Dates: start: 20170525
  26. IMODIUM [Concomitant]
     Active Substance: LOPERAMIDE HYDROCHLORIDE
     Indication: DIARRHOEA
     Route: 065
  27. IMODIUM [Concomitant]
     Active Substance: LOPERAMIDE HYDROCHLORIDE
     Indication: DIARRHOEA
  28. GAS-X [Concomitant]
     Active Substance: DIMETHICONE
     Indication: DIARRHOEA
     Route: 065
  29. TYLENOL [Concomitant]
     Active Substance: ACETAMINOPHEN
     Indication: DIARRHOEA
     Route: 065
  30. NORMAL SALINE [Concomitant]
     Active Substance: SODIUM CHLORIDE
     Indication: DIARRHOEA
     Route: 041
  31. MELPHALAN. [Suspect]
     Active Substance: MELPHALAN
     Indication: STEM CELL TRANSPLANT
     Dosage: 265 MILLIGRAM
     Route: 041
     Dates: start: 20151123, end: 20151123
  32. ZOPICLONE [Concomitant]
     Active Substance: ZOPICLONE
     Indication: INSOMNIA
     Route: 065
     Dates: start: 20150921
  33. PROBIOTIC [Concomitant]
     Active Substance: PROBIOTICS NOS
     Indication: DIARRHOEA
     Route: 065

REACTIONS (1)
  - Adenocarcinoma of colon [Not Recovered/Not Resolved]

NARRATIVE: CASE EVENT DATE: 20160426
